FAERS Safety Report 4785163-0 (Version None)
Quarter: 2005Q3

REPORT INFORMATION
  Report Type: 
  Country: None (occurrence: None)
  Receive Date: 20050929
  Receipt Date: 20050922
  Transmission Date: 20060218
  Serious: Yes (Other)
  Sender: FDA-Public Use
  Company Number: 200510624BFR

PATIENT
  Age: 62 Year
  Sex: Female

DRUGS (4)
  1. MOXIFLOXACIN HYDROCHLORIDE [Suspect]
     Indication: SINUSITIS
     Dosage: 400 MG, QD, ORAL
     Route: 048
  2. FEMARA [Concomitant]
  3. CALCIUM GLUCONATE [Concomitant]
  4. RHINADVIL [Concomitant]

REACTIONS (1)
  - DIPLOPIA [None]
